FAERS Safety Report 9355490 (Version 3)
Quarter: 2013Q3

REPORT INFORMATION
  Report Type: Spontaneous
  Country: US (occurrence: US)
  Receive Date: 20130619
  Receipt Date: 20130718
  Transmission Date: 20140515
  Serious: Yes (Other)
  Sender: FDA-Public Use
  Company Number: US-PFIZER INC-2013181798

PATIENT
  Age: 65 Year
  Sex: Male
  Weight: 72.56 kg

DRUGS (6)
  1. CELEBREX [Suspect]
     Indication: BACK DISORDER
     Dosage: 100 MG, A DAY
     Dates: start: 2005, end: 201305
  2. CELEBREX [Suspect]
     Indication: SPINAL COLUMN STENOSIS
     Dosage: 100 MG, 1X/DAY
  3. CELEBREX [Suspect]
     Indication: INTERVERTEBRAL DISC COMPRESSION
     Dosage: 100 MG, 1X/DAY
  4. CELEBREX [Suspect]
     Indication: PAIN
  5. TYLENOL [Concomitant]
     Indication: PAIN
     Dosage: 1000 MG, 3X/DAY
  6. FINASTERIDE [Concomitant]
     Indication: PROSTATOMEGALY
     Dosage: 5 MG, 1X/DAY

REACTIONS (1)
  - Spinal disorder [Unknown]
